FAERS Safety Report 8860230 (Version 1)
Quarter: 2012Q4

REPORT INFORMATION
  Report Type: 
  Country: AT (occurrence: AT)
  Receive Date: 20121025
  Receipt Date: 20121025
  Transmission Date: 20130627
  Serious: Yes (Other)
  Sender: FDA-Public Use
  Company Number: AT-009507513-1210AUT006381

PATIENT
  Age: 52 Year
  Sex: Male
  Weight: 86.5 kg

DRUGS (6)
  1. SYCREST [Suspect]
     Indication: BIPOLAR DISORDER
     Dosage: 10 mg, bid
     Route: 048
     Dates: start: 20100917, end: 20121011
  2. QUILONUM (LITHIUM ACETATE) [Concomitant]
     Dosage: 500 mg, bid
     Route: 048
  3. DEPAKINE [Concomitant]
     Dosage: 500 mg, bid
     Route: 048
  4. ZYPREXA [Concomitant]
     Dosage: 10 mg, qd
     Route: 048
  5. PRAXITEN [Concomitant]
     Dosage: 50 mg, tid
     Route: 048
     Dates: start: 20120901, end: 20121009
  6. NOZINAN [Concomitant]
     Dosage: 120 mg/ml, bid
     Route: 048

REACTIONS (1)
  - Liver function test abnormal [Recovered/Resolved]
